FAERS Safety Report 9001212 (Version 1)
Quarter: 2013Q1

REPORT INFORMATION
  Report Type: Spontaneous
  Country: US (occurrence: US)
  Receive Date: 20130107
  Receipt Date: 20130107
  Transmission Date: 20140127
  Serious: No
  Sender: FDA-Public Use
  Company Number: US-009507513-1301USA001388

PATIENT
  Age: 50 None
  Sex: Female

DRUGS (1)
  1. JANUMET XR [Suspect]
     Indication: TYPE 2 DIABETES MELLITUS
     Dosage: 1 DF, BID
     Route: 048
     Dates: start: 20121107, end: 20130101

REACTIONS (12)
  - Oropharyngeal discomfort [Recovering/Resolving]
  - Diabetes mellitus inadequate control [Recovering/Resolving]
  - Tremor [Recovering/Resolving]
  - Mental disorder [Recovering/Resolving]
  - Insomnia [Recovering/Resolving]
  - Night sweats [Recovering/Resolving]
  - Decreased appetite [Recovering/Resolving]
  - Balance disorder [Recovering/Resolving]
  - Food craving [Recovering/Resolving]
  - Hot flush [Recovering/Resolving]
  - Dry mouth [Recovering/Resolving]
  - Nasal dryness [Recovering/Resolving]
